FAERS Safety Report 18553659 (Version 1)
Quarter: 2020Q4

REPORT INFORMATION
  Report Type: Spontaneous
  Country: IT (occurrence: IT)
  Receive Date: 20201127
  Receipt Date: 20201127
  Transmission Date: 20210114
  Serious: Yes (Hospitalization, Other)
  Sender: FDA-Public Use
  Company Number: IT-ACCORD-209087

PATIENT
  Age: 23 Year

DRUGS (4)
  1. VALPROIC ACID. [Concomitant]
     Active Substance: VALPROIC ACID
     Indication: SCHIZOPHRENIA
  2. CLOZAPINE. [Suspect]
     Active Substance: CLOZAPINE
     Indication: DELIRIUM
  3. CLOZAPINE. [Suspect]
     Active Substance: CLOZAPINE
     Indication: SCHIZOPHRENIA
  4. VALPROIC ACID. [Concomitant]
     Active Substance: VALPROIC ACID
     Indication: DELIRIUM

REACTIONS (2)
  - Tubulointerstitial nephritis [Recovered/Resolved]
  - Leukocytosis [Unknown]
